FAERS Safety Report 5073253-7 (Version None)
Quarter: 2006Q3

REPORT INFORMATION
  Report Type: 
  Country: None (occurrence: None)
  Receive Date: 20060808
  Receipt Date: 20051216
  Transmission Date: 20061208
  Serious: Yes (Hospitalization, Congenital Anomaly, Other)
  Sender: FDA-Public Use
  Company Number: PHEH2005US13590

PATIENT
  Age: 1 Day
  Sex: Female

DRUGS (1)
  1. ELIDEL [Suspect]
     Dosage: UNK, UNK
     Route: 064
     Dates: start: 20050128, end: 20050201

REACTIONS (9)
  - BLISTER [None]
  - BLOOD SODIUM INCREASED [None]
  - BODY TEMPERATURE DECREASED [None]
  - BURNS SECOND DEGREE [None]
  - CONGENITAL ANOMALY [None]
  - DRUG EXPOSURE DURING PREGNANCY [None]
  - RASH PUSTULAR [None]
  - SKIN EXFOLIATION [None]
  - THERMAL BURN [None]
